FAERS Safety Report 24666430 (Version 1)
Quarter: 2024Q4

REPORT INFORMATION
  Report Type: Report from Study
  Country: US (occurrence: US)
  Receive Date: 20241126
  Receipt Date: 20241126
  Transmission Date: 20250115
  Serious: Yes (Other)
  Sender: OTSUKA
  Company Number: US-OTSUKA-2024_015021

PATIENT
  Age: 37 Year
  Sex: Female

DRUGS (3)
  1. TOLVAPTAN [Suspect]
     Active Substance: TOLVAPTAN
     Indication: Congenital cystic kidney disease
     Dosage: 45 MG, QD (UPON WAKING)
     Route: 048
     Dates: start: 20240512, end: 202411
  2. TOLVAPTAN [Suspect]
     Active Substance: TOLVAPTAN
     Dosage: 15 MG (8 H LATER)
     Route: 048
     Dates: start: 20240512, end: 202411
  3. TOLVAPTAN [Suspect]
     Active Substance: TOLVAPTAN
     Dosage: UNK
     Route: 065
     Dates: start: 20241121

REACTIONS (3)
  - Hysterectomy [Recovered/Resolved]
  - Fatigue [Recovering/Resolving]
  - Thirst [Recovering/Resolving]

NARRATIVE: CASE EVENT DATE: 20240512
